FAERS Safety Report 22012119 (Version 1)
Quarter: 2023Q1

REPORT INFORMATION
  Report Type: Spontaneous
  Country: CN (occurrence: CN)
  Receive Date: 20230220
  Receipt Date: 20230220
  Transmission Date: 20230417
  Serious: Yes (Hospitalization, Other)
  Sender: FDA-Public Use
  Company Number: None

PATIENT
  Age: 10 Year
  Sex: Male
  Weight: 30.8 kg

DRUGS (6)
  1. CYCLOPHOSPHAMIDE [Suspect]
     Active Substance: CYCLOPHOSPHAMIDE
     Indication: Hodgkin^s disease
     Dosage: 0.7 G, QD, NEEDLE (DILUTED WITH 4:1 GNS (GLUCOSE SODIUM CHLORIDE) 250ML)
     Route: 041
     Dates: start: 20230104, end: 20230104
  2. DEXTROSE\SODIUM CHLORIDE [Suspect]
     Active Substance: DEXTROSE\SODIUM CHLORIDE
     Indication: Medication dilution
     Dosage: 250 ML, QD (USED TO DILUTE CYCLOPHOSPHAMIDE NEEDLE 0.7 G)
     Route: 041
     Dates: start: 20230104, end: 20230104
  3. SODIUM CHLORIDE [Suspect]
     Active Substance: SODIUM CHLORIDE
     Indication: Medication dilution
     Dosage: 350 ML, QD, STRENGTH: 0.9% (USED TO DILUTE 0.1007 G OF ETOPOSIDE)
     Route: 041
     Dates: start: 20230104, end: 20230106
  4. SODIUM CHLORIDE [Suspect]
     Active Substance: SODIUM CHLORIDE
     Dosage: 250 ML, QD, STRENGTH: 0.9% (USED TO DILUTE EPIRUBICIN 26.5 MG)
     Route: 041
     Dates: start: 20230104, end: 20230104
  5. ETOPOSIDE [Suspect]
     Active Substance: ETOPOSIDE
     Indication: Hodgkin^s disease
     Dosage: 0.1007 G, QD (DILUTED WITH 0.9% NS (SODIUM CHLORIDE) 350 ML)
     Route: 041
     Dates: start: 20230104, end: 20230106
  6. EPIRUBICIN [Suspect]
     Active Substance: EPIRUBICIN
     Indication: Hodgkin^s disease
     Dosage: 26.5 MG, QD (DILUTED WITH 0.9 % SODIUM CHLORIDE 250 ML)
     Route: 041
     Dates: start: 20230104, end: 20230104

REACTIONS (1)
  - Myelosuppression [Recovering/Resolving]

NARRATIVE: CASE EVENT DATE: 20230112
